FAERS Safety Report 16921754 (Version 3)
Quarter: 2021Q1

REPORT INFORMATION
  Report Type: Report from Study
  Country: BR (occurrence: BR)
  Receive Date: 20191015
  Receipt Date: 20210211
  Transmission Date: 20210419
  Serious: Yes (Hospitalization, Other)
  Sender: FDA-Public Use
  Company Number: BR-SHIRE-BR201932688

PATIENT
  Age: 33 Year
  Sex: Male
  Weight: 58 kg

DRUGS (5)
  1. NOVOSEVEN [Concomitant]
     Active Substance: COAGULATION FACTOR VIIA RECOMBINANT HUMAN
     Indication: INHIBITORY DRUG INTERACTION
  2. FACTOR VIII INHIBITOR BYPASSING FRACTION; BAXJECT II NF [Suspect]
     Active Substance: ANTI-INHIBITOR COAGULANT COMPLEX
     Indication: INHIBITORY DRUG INTERACTION
     Dosage: 6000 INTERNATIONAL UNIT, 3/WEEK
     Route: 065
     Dates: start: 20191001, end: 20200823
  3. FACTOR VIII INHIBITOR BYPASSING FRACTION; BAXJECT II NF [Suspect]
     Active Substance: ANTI-INHIBITOR COAGULANT COMPLEX
     Indication: HAEMOPHILIA B WITH ANTI FACTOR IX
     Dosage: UNK UNK, 3/WEEK
     Route: 050
  4. FACTOR VIII INHIBITOR BYPASSING FRACTION; BAXJECT II NF [Suspect]
     Active Substance: ANTI-INHIBITOR COAGULANT COMPLEX
     Indication: FACTOR VII DEFICIENCY
     Dosage: UNK, 2/WEEK
     Route: 050
  5. FACTOR VIII INHIBITOR BYPASSING FRACTION; BAXJECT II NF [Suspect]
     Active Substance: ANTI-INHIBITOR COAGULANT COMPLEX
     Dosage: 4000 INTERNATIONAL UNIT
     Route: 065
     Dates: start: 20191011

REACTIONS (10)
  - Contusion [Unknown]
  - Pain [Unknown]
  - Haemorrhage [Unknown]
  - Fatigue [Unknown]
  - Weight increased [Unknown]
  - Arthralgia [Recovering/Resolving]
  - Movement disorder [Unknown]
  - Skin discolouration [Unknown]
  - Headache [Unknown]
  - Swelling [Unknown]

NARRATIVE: CASE EVENT DATE: 201309
